FAERS Safety Report 21174340 (Version 1)
Quarter: 2022Q3

REPORT INFORMATION
  Report Type: Spontaneous
  Country: AU (occurrence: AU)
  Receive Date: 20220804
  Receipt Date: 20220804
  Transmission Date: 20221027
  Serious: Yes (Other)
  Sender: FDA-Public Use
  Company Number: AU-SA-SAC20220802000842

PATIENT
  Age: 92 Year
  Sex: Female

DRUGS (2)
  1. LIBTAYO [Suspect]
     Active Substance: CEMIPLIMAB-RWLC
     Indication: Squamous cell carcinoma of skin
     Dosage: UNK
     Route: 065
     Dates: start: 202003, end: 20200720
  2. LIBTAYO [Suspect]
     Active Substance: CEMIPLIMAB-RWLC
     Dosage: UNK
     Dates: start: 20220309

REACTIONS (6)
  - Eye pain [Recovered/Resolved]
  - Condition aggravated [Unknown]
  - Depression [Unknown]
  - Swelling [Unknown]
  - Skin neoplasm excision [Unknown]
  - Headache [Unknown]

NARRATIVE: CASE EVENT DATE: 20200301
